FAERS Safety Report 5978670-6 (Version None)
Quarter: 2008Q4

REPORT INFORMATION
  Report Type: 
  Country: None (occurrence: None)
  Receive Date: 20081204
  Receipt Date: 20081126
  Transmission Date: 20090506
  Serious: Yes (Disabling)
  Sender: FDA-Public Use
  Company Number: JP-ASTRAZENECA-2008AP08555

PATIENT
  Age: 14192 Day
  Sex: Female
  Weight: 49 kg

DRUGS (8)
  1. NAROPIN [Suspect]
     Indication: EPIDURAL ANAESTHESIA
     Dosage: ANAPEINE DILUTED WITH SAME AMOUNT OFSALINE (4 ML) WAS ADMINISTERED TWICE
     Route: 008
     Dates: start: 20081027, end: 20081027
  2. NAROPIN [Suspect]
     Route: 008
     Dates: start: 20081027, end: 20081028
  3. THYRADIN [Concomitant]
     Indication: AUTOIMMUNE THYROIDITIS
     Route: 048
     Dates: start: 20030101
  4. DIPRIVAN [Concomitant]
     Indication: GENERAL ANAESTHESIA
     Route: 041
     Dates: start: 20081027, end: 20081027
  5. ULTIVA [Concomitant]
     Indication: GENERAL ANAESTHESIA
     Route: 041
     Dates: start: 20081027, end: 20081027
  6. ESLAX [Concomitant]
     Indication: GENERAL ANAESTHESIA
     Route: 042
     Dates: start: 20081027, end: 20081027
  7. FENTANYL-100 [Concomitant]
     Indication: GENERAL ANAESTHESIA
     Route: 042
     Dates: start: 20081027, end: 20081027
  8. XYLOCAINE [Concomitant]
     Indication: GENERAL ANAESTHESIA
     Dosage: 3 ML OF XYLOCAINE 2%
     Route: 008
     Dates: start: 20081027, end: 20081027

REACTIONS (2)
  - ILLUSION [None]
  - MOVEMENT DISORDER [None]
